FAERS Safety Report 11988152 (Version 3)
Quarter: 2016Q1

REPORT INFORMATION
  Report Type: Spontaneous
  Country: US (occurrence: US)
  Receive Date: 20160202
  Receipt Date: 20160310
  Transmission Date: 20160526
  Serious: Yes (Hospitalization)
  Sender: FDA-Public Use
  Company Number: US-JAZZ-2015-US-022527

PATIENT
  Age: 51 Year
  Sex: Female

DRUGS (2)
  1. PRIALT [Suspect]
     Active Substance: ZICONOTIDE ACETATE
     Indication: PAIN
     Dosage: UNK ?G, QH
     Route: 037
  2. PRIALT [Suspect]
     Active Substance: ZICONOTIDE ACETATE
     Indication: POST LAMINECTOMY SYNDROME
     Dosage: 0.085 ?G, QH
     Route: 037

REACTIONS (3)
  - Unevaluable event [Recovered/Resolved]
  - Device issue [Unknown]
  - Incision site swelling [Not Recovered/Not Resolved]

NARRATIVE: CASE EVENT DATE: 20150709
